FAERS Safety Report 20119960 (Version 1)
Quarter: 2021Q4

REPORT INFORMATION
  Report Type: Spontaneous
  Country: US (occurrence: US)
  Receive Date: 20211126
  Receipt Date: 20211126
  Transmission Date: 20220303
  Serious: Yes (Death)
  Sender: FDA-Public Use
  Company Number: US-WYE-H02028708

PATIENT
  Age: 62 Year
  Sex: Male

DRUGS (5)
  1. ADVIL [Suspect]
     Active Substance: IBUPROFEN
     Indication: Suicide attempt
     Dosage: UNK
     Route: 048
     Dates: start: 2006, end: 2006
  2. ROBITUSSIN COUGH LONG-ACTING [Suspect]
     Active Substance: DEXTROMETHORPHAN HYDROBROMIDE
     Indication: Suicide attempt
     Dosage: UNK
     Route: 048
     Dates: start: 2006, end: 2006
  3. AMOXICILLIN [Suspect]
     Active Substance: AMOXICILLIN
     Indication: Suicide attempt
     Dosage: UNK
     Route: 048
     Dates: start: 2006, end: 2006
  4. ASPIRIN [Suspect]
     Active Substance: ASPIRIN
     Indication: Suicide attempt
     Dosage: UNK
     Route: 048
     Dates: start: 2006, end: 2006
  5. PSEUDOEPHEDRINE HYDROCHLORIDE [Suspect]
     Active Substance: PSEUDOEPHEDRINE HYDROCHLORIDE
     Indication: Suicide attempt
     Dosage: UNK
     Route: 048
     Dates: start: 2006, end: 2006

REACTIONS (2)
  - Intentional overdose [Fatal]
  - Toxicity to various agents [Fatal]

NARRATIVE: CASE EVENT DATE: 20060101
